FAERS Safety Report 16752490 (Version 2)
Quarter: 2019Q3

REPORT INFORMATION
  Report Type: Spontaneous
  Country: FR (occurrence: FR)
  Receive Date: 20190828
  Receipt Date: 20190912
  Transmission Date: 20191005
  Serious: Yes (Life-Threatening)
  Sender: FDA-Public Use
  Company Number: FR-PFIZER INC-2019368869

PATIENT
  Age: 12 Year
  Sex: Female
  Weight: 27 kg

DRUGS (1)
  1. RAPAMUNE [Suspect]
     Active Substance: SIROLIMUS
     Indication: LYMPHANGIOMA
     Dosage: 0.08 MG/KG, 1X/DAY
     Route: 048
     Dates: start: 20190709, end: 20190801

REACTIONS (5)
  - Off label use [Unknown]
  - Interstitial lung disease [Not Recovered/Not Resolved]
  - Product use issue [Unknown]
  - Pulmonary alveolar haemorrhage [Not Recovered/Not Resolved]
  - Product use in unapproved indication [Unknown]

NARRATIVE: CASE EVENT DATE: 20190709
